FAERS Safety Report 7379176-2 (Version None)
Quarter: 2011Q1

REPORT INFORMATION
  Report Type: 
  Country: None (occurrence: None)
  Receive Date: 20110328
  Receipt Date: 20110321
  Transmission Date: 20110831
  Serious: Yes (Hospitalization)
  Sender: FDA-Public Use
  Company Number: PHHO2010DE18188

PATIENT
  Sex: Male

DRUGS (4)
  1. SIMULECT [Suspect]
     Indication: LIVER TRANSPLANT
     Dosage: 20 MG, ONCE/SINGLE
     Route: 042
     Dates: start: 20081030
  2. PROGRAF [Suspect]
     Indication: LIVER TRANSPLANT
     Dosage: 2.0 / 2.5 MG
     Route: 048
     Dates: start: 20100910
  3. SIMULECT [Suspect]
     Dosage: 20 MG, ONCE/SINGLE
     Route: 042
     Dates: start: 20081103
  4. NO TREATMENT RECEIVED [Suspect]
     Indication: LIVER TRANSPLANT
     Dosage: UNK
     Route: 048
     Dates: start: 20100910

REACTIONS (3)
  - HEPATIC STEATOSIS [None]
  - PYREXIA [None]
  - POST PROCEDURAL INFECTION [None]
